FAERS Safety Report 14301270 (Version 3)
Quarter: 2018Q1

REPORT INFORMATION
  Report Type: Report from Study
  Country: DE (occurrence: DE)
  Receive Date: 20171219
  Receipt Date: 20180316
  Transmission Date: 20180509
  Serious: Yes (Hospitalization, Other)
  Sender: FDA-Public Use
  Company Number: DE-BRISTOL-MYERS SQUIBB COMPANY-BMS-2017-112633

PATIENT
  Age: 56 Year
  Sex: Male

DRUGS (4)
  1. CURAM                              /00756801/ [Concomitant]
     Indication: PNEUMONIA
     Dosage: 2.2 G, TID
     Route: 042
     Dates: start: 20171030, end: 20171114
  2. ABATACEPT [Suspect]
     Active Substance: ABATACEPT
     Indication: INTERSTITIAL LUNG DISEASE
     Dosage: 125 MG, QWK
     Route: 065
     Dates: start: 20170614, end: 20171206
  3. ABATACEPT [Suspect]
     Active Substance: ABATACEPT
     Indication: IMMUNODEFICIENCY COMMON VARIABLE
     Route: 065
  4. LOVENOX [Concomitant]
     Active Substance: ENOXAPARIN SODIUM
     Indication: PROPHYLAXIS
     Dosage: 40 MG, BID
     Route: 058
     Dates: start: 20171030, end: 20171114

REACTIONS (1)
  - Bronchopulmonary aspergillosis [Recovered/Resolved]

NARRATIVE: CASE EVENT DATE: 20171207
